FAERS Safety Report 9514754 (Version 1)
Quarter: 2013Q1

REPORT INFORMATION
  Report Type: Spontaneous
  Country: US (occurrence: None)
  Receive Date: 20130305
  Receipt Date: 20130305
  Transmission Date: 20140127
  Serious: Yes (Hospitalization)
  Sender: FDA-Public Use
  Company Number: 163-21880-12112823

PATIENT
  Age: 72 Year
  Sex: Female

DRUGS (20)
  1. REVLIMID [Suspect]
     Indication: MYELOFIBROSIS
     Dosage: 5 MG, 21 IN 21 D, PO
     Route: 048
     Dates: start: 20121015, end: 20121102
  2. RUXOLITINIB [Suspect]
     Indication: MYELOFIBROSIS
     Dosage: 30 MG, 2 IN 1 D, PO
     Route: 048
     Dates: start: 20121020, end: 20121105
  3. BYSTOLIC (NEBIVOLOL HYDROCHLORIDE) (UNKNOWN) [Concomitant]
  4. CLONIDINE (CLONIDINE) (UNKNOWN) [Concomitant]
  5. HEMOCYTE (FERROUS FUMARATE) (UNKNOWN) [Concomitant]
  6. LEXAPRO (ESCITALOPRAM OXALATE) (UNKNOWN) [Concomitant]
  7. MULTIVITAMINS (MULTIVITAMINS) (UNKNOWN) [Concomitant]
  8. NASACORT (TRIAMCINOLONE ACETONIDE) (UNKNOWN) [Concomitant]
  9. RENAGEL (SEVELAMER HYDROCHLORIDE) (UNKNOWN) [Concomitant]
  10. TRIBENZOR (TRIBENZOR) (UNKNOWN) [Concomitant]
  11. VITAMIN D (ERGOCALCIFEROL) (UNKNOWN) [Concomitant]
  12. WELCHOL (COLESEVELAM HYDROCHLORIDE) (UNKNOWN) [Concomitant]
  13. FLUID (BARIUM SULFATE) (UNKNOWN) [Concomitant]
  14. MAGNESIUM (MAGNESIUM) (UNKNOWN) [Concomitant]
  15. NORVASC (AMLODIPINE BESILATE) (UNKNOWN) [Concomitant]
  16. AMPHOJEL (ALUMINIUM HYDROXIDE GEL) (UNKNOWN) [Concomitant]
  17. PROTONIX (UNKNOWN) [Concomitant]
  18. FLONASE (FLUTICASONE PROPIONATE) (SPRAY (NOT INHALATION) [Concomitant]
  19. HYDREA (HYDROXYCARBAMIDE) (UNKNOWN) [Concomitant]
  20. ALLOPURINOL (ALLOPURINOL) (UNKNOWN) [Concomitant]

REACTIONS (4)
  - Tumour lysis syndrome [None]
  - Renal failure acute [None]
  - Pericarditis uraemic [None]
  - White blood cell count decreased [None]
